FAERS Safety Report 10744745 (Version 1)
Quarter: 2015Q1

REPORT INFORMATION
  Report Type: Spontaneous
  Country: NL (occurrence: NL)
  Receive Date: 20150128
  Receipt Date: 20150128
  Transmission Date: 20150721
  Serious: Yes (Other)
  Sender: FDA-Public Use
  Company Number: NL-WATSON-2015-00640

PATIENT
  Age: 65 Year
  Sex: Female

DRUGS (2)
  1. DOXYCYCLINE ACTAVIS [Suspect]
     Active Substance: DOXYCYCLINE
     Indication: PRODUCT USED FOR UNKNOWN INDICATION
     Dosage: 1 DF, DAILY (EERSTE DAG 2 DAARNA 2X PER DAG 1 TABLET/FIRST 2 DAYS 2X PER DAY 1 TABLET)
     Route: 048
     Dates: start: 20141204, end: 20141205
  2. METAMUCIL [Concomitant]
     Active Substance: PLANTAGO SEED
     Indication: PRODUCT USED FOR UNKNOWN INDICATION
     Dosage: 3.4 G (1 SACHET), DAILY
     Route: 048
     Dates: start: 20130830

REACTIONS (1)
  - Rash pruritic [Recovered/Resolved]

NARRATIVE: CASE EVENT DATE: 20141204
